FAERS Safety Report 12045959 (Version 9)
Quarter: 2020Q2

REPORT INFORMATION
  Report Type: Report from Study
  Country: CN (occurrence: CN)
  Receive Date: 20160208
  Receipt Date: 20200407
  Transmission Date: 20200713
  Serious: Yes (Hospitalization, Other)
  Sender: FDA-Public Use
  Company Number: PHHY2016CN000610

PATIENT
  Age: 51 Year
  Sex: Male
  Weight: 70 kg

DRUGS (112)
  1. MYFORTIC [Suspect]
     Active Substance: MYCOPHENOLATE SODIUM
     Dosage: 540 MG, QD
     Route: 048
     Dates: start: 20160609
  2. TACROLIMUS. [Suspect]
     Active Substance: TACROLIMUS
     Dosage: 4 MG, QD
     Route: 065
     Dates: start: 20160303, end: 20160504
  3. ISOSORBIDE MONONITRATE SUSTAINED RELEASE TABLETS [Concomitant]
     Dosage: 60 MG, QD
     Route: 048
     Dates: start: 20160707
  4. GLYCERIN. [Concomitant]
     Active Substance: GLYCERIN
     Indication: CONSTIPATION
     Dosage: 110 ML, QD
     Route: 050
     Dates: start: 20151203, end: 20151203
  5. RABEPRAZOLE [Concomitant]
     Active Substance: RABEPRAZOLE
     Indication: GASTRITIS PROPHYLAXIS
     Dosage: 10 MG, QN
     Route: 048
     Dates: start: 20151208
  6. DICLOFENAC SODIUM. [Concomitant]
     Active Substance: DICLOFENAC SODIUM
     Indication: ANTIINFLAMMATORY THERAPY
     Dosage: 37.5 MG, QD
     Route: 048
     Dates: start: 20151230, end: 20151230
  7. TORASEMIDE [Concomitant]
     Active Substance: TORSEMIDE
     Dosage: 20 MG, QD
     Route: 042
     Dates: start: 20151205, end: 20151206
  8. XYLOMETAZOLINE HYDROCHLORIDE [Concomitant]
     Active Substance: XYLOMETAZOLINE HYDROCHLORIDE
     Indication: ANTIINFLAMMATORY THERAPY
     Dosage: 10 ML, QD
     Route: 045
     Dates: start: 20151229, end: 20151229
  9. ACETYL CYSTEINE [Concomitant]
     Indication: ANTIINFLAMMATORY THERAPY
     Dosage: 0.6 G, BID
     Route: 048
     Dates: start: 20151215, end: 20151226
  10. PARACETAMOL [Concomitant]
     Active Substance: ACETAMINOPHEN
     Indication: INFLAMMATION
     Dosage: 1 DF, QD
     Route: 048
     Dates: start: 20151230, end: 20151230
  11. ALBUMIN HUMAN [Concomitant]
     Active Substance: ALBUMIN HUMAN
     Dosage: 20 G, BID
     Route: 042
     Dates: start: 20151204, end: 20151205
  12. ERTAPENEM. [Concomitant]
     Active Substance: ERTAPENEM SODIUM
     Dosage: 1 G, QD (30MIN BEFORE THE SURGERY)
     Route: 065
     Dates: start: 20160619, end: 20160619
  13. SIMETHICONE (DIMETHICONE) [Concomitant]
     Active Substance: DIMETHICONE
     Indication: NEPHROLITHIASIS
     Dosage: 1 ML, QD
     Route: 048
     Dates: start: 20160622, end: 20160622
  14. MYFORTIC [Suspect]
     Active Substance: MYCOPHENOLATE SODIUM
     Indication: IMMUNOSUPPRESSANT DRUG THERAPY
     Dosage: 1080 MG, QD
     Route: 065
     Dates: start: 20151205, end: 20160513
  15. MYFORTIC [Suspect]
     Active Substance: MYCOPHENOLATE SODIUM
     Dosage: 900 MG, QD
     Route: 048
     Dates: start: 20160514, end: 20160608
  16. METHYLPREDNISOLONE. [Suspect]
     Active Substance: METHYLPREDNISOLONE
     Dosage: 500 MG, QD
     Route: 065
     Dates: start: 20151203, end: 20151206
  17. TACROLIMUS. [Suspect]
     Active Substance: TACROLIMUS
     Dosage: 5 MG, QD
     Route: 065
     Dates: start: 20160104, end: 20160302
  18. TACROLIMUS. [Suspect]
     Active Substance: TACROLIMUS
     Dosage: 5 MG, QD
     Route: 065
     Dates: start: 20160505, end: 20160513
  19. TACROLIMUS. [Suspect]
     Active Substance: TACROLIMUS
     Dosage: 3.5 MG, QD
     Route: 065
     Dates: start: 20160514, end: 20160515
  20. ISOSORBIDE MONONITRATE SUSTAINED RELEASE TABLETS [Concomitant]
     Dosage: 60 MG, QD
     Route: 048
     Dates: start: 20160617, end: 20160617
  21. RABEPRAZOLE [Concomitant]
     Active Substance: RABEPRAZOLE
     Indication: ANTACID THERAPY
     Dosage: 20 MG, QD
     Route: 048
     Dates: start: 20160104
  22. TORASEMIDE [Concomitant]
     Active Substance: TORSEMIDE
     Indication: DIURETIC THERAPY
     Dosage: 20 MG, BID
     Route: 042
     Dates: start: 20151203, end: 20151203
  23. INSULIN [Concomitant]
     Active Substance: INSULIN NOS
     Dosage: 6 IU, QD
     Route: 042
     Dates: start: 20160606, end: 20160607
  24. LIQUORICE [Concomitant]
     Active Substance: LICORICE
     Indication: INFLAMMATION
     Dosage: 4 DF, TID
     Route: 048
     Dates: start: 20151222, end: 20151226
  25. AMBROXOL HYDROCHLORIDE [Concomitant]
     Active Substance: AMBROXOL HYDROCHLORIDE
     Indication: PRODUCTIVE COUGH
     Dosage: 15 MG, QID
     Route: 055
     Dates: start: 20151203, end: 20151203
  26. AMBROXOL HYDROCHLORIDE [Concomitant]
     Active Substance: AMBROXOL HYDROCHLORIDE
     Indication: DYSPNOEA
     Dosage: 30 MG, QD
     Route: 055
     Dates: start: 20151203, end: 20151208
  27. AMBROXOL HYDROCHLORIDE [Concomitant]
     Active Substance: AMBROXOL HYDROCHLORIDE
     Dosage: 15 MG, BID
     Route: 055
     Dates: start: 20151219, end: 20151225
  28. CILASTATIN SODIUM W/IMIPENEM [Concomitant]
     Active Substance: CILASTATIN SODIUM\IMIPENEM
     Indication: PRODUCT USED FOR UNKNOWN INDICATION
     Dosage: 1 G, QD
     Route: 041
     Dates: start: 20160620, end: 20160620
  29. COMPOND AMINO ACID [Concomitant]
     Indication: PRODUCT USED FOR UNKNOWN INDICATION
     Dosage: 400 ML, QD
     Route: 041
     Dates: start: 20160620, end: 20160621
  30. ERTAPENEM. [Concomitant]
     Active Substance: ERTAPENEM SODIUM
     Indication: NEPHROLITHIASIS
     Dosage: 1 G, QD
     Route: 042
     Dates: start: 20160621, end: 20160629
  31. URAPIDIL HYDROCHLORIDE [Concomitant]
     Active Substance: URAPIDIL HYDROCHLORIDE
     Indication: NEPHROLITHIASIS
     Dosage: 12.5 MG, QD
     Route: 042
     Dates: start: 20160620, end: 20160620
  32. MYFORTIC [Suspect]
     Active Substance: MYCOPHENOLATE SODIUM
     Indication: RENAL TRANSPLANT
     Dosage: 1440 MG, QD
     Route: 065
     Dates: start: 20151203, end: 20151204
  33. METHYLPREDNISOLONE. [Suspect]
     Active Substance: METHYLPREDNISOLONE
     Indication: IMMUNOSUPPRESSANT DRUG THERAPY
     Dosage: 1000 MG, QD
     Route: 065
     Dates: start: 20151202, end: 20151202
  34. ASPIRIN ENTERIC COATED TABLETS [Concomitant]
     Dosage: 100 MG, QD
     Route: 048
     Dates: start: 20160802
  35. ISOSORBIDE MONONITRATE SUSTAINED RELEASE TABLETS [Concomitant]
     Dosage: 60 MG, QD
     Route: 048
     Dates: start: 20160606, end: 20160606
  36. ALCOHOL. [Concomitant]
     Active Substance: ALCOHOL
     Indication: PRODUCT USED FOR UNKNOWN INDICATION
     Dosage: 250 ML, QD
     Route: 065
     Dates: start: 20151203, end: 20151203
  37. CALCIUM + D3                       /00944201/ [Concomitant]
     Active Substance: CALCIUM CARBONATE\CHOLECALCIFEROL
     Indication: MINERAL SUPPLEMENTATION
     Dosage: 600 MG, QD
     Route: 048
     Dates: start: 20151208, end: 20160921
  38. CALCIUM + D3                       /00944201/ [Concomitant]
     Active Substance: CALCIUM CARBONATE\CHOLECALCIFEROL
     Dosage: 600 MG, QD
     Route: 048
     Dates: start: 20160822, end: 20160922
  39. TORASEMIDE [Concomitant]
     Active Substance: TORSEMIDE
     Dosage: 20 MG, TID
     Route: 042
     Dates: start: 20151203, end: 20151204
  40. AMBROXOL HYDROCHLORIDE [Concomitant]
     Active Substance: AMBROXOL HYDROCHLORIDE
     Indication: PROPHYLAXIS
     Dosage: 30 MG, BID
     Route: 042
     Dates: start: 20151203, end: 20151203
  41. CALCII CHLORIDUM//CALCIUM CHLORIDE [Concomitant]
     Indication: FLUID REPLACEMENT
     Dosage: 1 G, QD
     Route: 042
     Dates: start: 20151203, end: 20151203
  42. AMBROXOL HYDROCHLORIDE [Concomitant]
     Active Substance: AMBROXOL HYDROCHLORIDE
     Indication: PROPHYLAXIS
     Dosage: 30 MG, QD
     Route: 055
     Dates: start: 20151213, end: 20151219
  43. AMLODIPINE BESYLATE. [Concomitant]
     Active Substance: AMLODIPINE BESYLATE
     Indication: HYPERTENSION
     Dosage: 5 MG, QD
     Route: 048
     Dates: start: 20160128, end: 20160513
  44. BENAZEPRIL [Concomitant]
     Active Substance: BENAZEPRIL HYDROCHLORIDE
     Indication: HYPERTENSION
     Dosage: 10 MG, QD
     Route: 048
     Dates: start: 20160926
  45. DEXAMETHASONE SODIUM PHOSPHATE. [Concomitant]
     Active Substance: DEXAMETHASONE SODIUM PHOSPHATE
     Indication: NEPHROLITHIASIS
     Dosage: 10 MG, QD
     Route: 042
     Dates: start: 20160620, end: 20160620
  46. SULFAMETHOXAZOLE [Concomitant]
     Active Substance: SULFAMETHOXAZOLE
     Indication: INFLAMMATION
     Dosage: 1 DF, QD
     Route: 048
     Dates: start: 20160216, end: 20160513
  47. TACROLIMUS. [Suspect]
     Active Substance: TACROLIMUS
     Indication: IMMUNOSUPPRESSANT DRUG THERAPY
     Dosage: 2 MG, QD
     Route: 065
     Dates: start: 20151203, end: 20151206
  48. ASPIRIN ENTERIC COATED TABLETS [Concomitant]
     Indication: HYPERTENSION
     Dosage: 100 MG, QD
     Route: 048
     Dates: start: 20151213, end: 20160524
  49. AZITHROMYCIN ANHYDROUS. [Concomitant]
     Active Substance: AZITHROMYCIN ANHYDROUS
     Indication: PROPHYLAXIS
     Dosage: 500 MG, QD
     Route: 048
     Dates: start: 20151216, end: 20151218
  50. DOPAMINE [Concomitant]
     Active Substance: DOPAMINE HYDROCHLORIDE
     Dosage: 200 MG, QD
     Route: 042
     Dates: start: 20151204, end: 20151204
  51. POTASSIUM CHLORIDE. [Concomitant]
     Active Substance: POTASSIUM CHLORIDE
     Indication: FLUID REPLACEMENT
     Dosage: 4 G, QD
     Route: 042
     Dates: start: 20151203, end: 20151203
  52. TERBUTALINE SULFATE. [Concomitant]
     Active Substance: TERBUTALINE SULFATE
     Indication: ANTIINFLAMMATORY THERAPY
     Dosage: 0.25 MG, BID
     Route: 055
     Dates: start: 20151219, end: 20151225
  53. CEFMINOX//CEFMINOX SODIUM [Concomitant]
     Indication: INFECTION PROPHYLAXIS
     Dosage: 2 G, BID
     Route: 042
     Dates: start: 20151203, end: 20151208
  54. NITROGLYCERIN. [Concomitant]
     Active Substance: NITROGLYCERIN
     Indication: HYPERTENSION
     Dosage: 0.5 MG, QD
     Route: 060
     Dates: start: 20151203, end: 20151203
  55. ERTAPENEM. [Concomitant]
     Active Substance: ERTAPENEM SODIUM
     Indication: PRODUCT USED FOR UNKNOWN INDICATION
     Dosage: 1 G, QD
     Route: 041
     Dates: start: 20160621, end: 20160629
  56. HAEMOCOAGULASE ATROX [Concomitant]
     Dosage: 2 IU, BID
     Route: 042
     Dates: start: 20160621, end: 20160625
  57. ALANYL GLUTAMINE [Concomitant]
     Active Substance: ALANYL GLUTAMINE
     Indication: PRODUCT USED FOR UNKNOWN INDICATION
     Dosage: 16 G, UNK
     Route: 041
     Dates: start: 20160620, end: 20160621
  58. FOSINOPRIL [Concomitant]
     Active Substance: FOSINOPRIL
     Indication: HYPERTENSION
     Dosage: 10 MG, QD
     Route: 048
     Dates: start: 20161114
  59. CALCITRIOL. [Concomitant]
     Active Substance: CALCITRIOL
     Indication: PRODUCT USED FOR UNKNOWN INDICATION
     Dosage: 1 DF, QD
     Route: 048
     Dates: start: 20160303
  60. FRUCTOSE [Concomitant]
     Active Substance: FRUCTOSE
     Indication: NEPHROLITHIASIS
     Dosage: 50 G, QD
     Route: 042
     Dates: start: 20160606, end: 20160606
  61. TACROLIMUS. [Suspect]
     Active Substance: TACROLIMUS
     Dosage: 4 MG, QD
     Route: 065
     Dates: start: 20160516
  62. HEPARIN SODIUM. [Concomitant]
     Active Substance: HEPARIN SODIUM
     Indication: PRODUCT USED FOR UNKNOWN INDICATION
     Dosage: 0.025 IU, QD
     Route: 042
     Dates: start: 20151203, end: 20151203
  63. HEPARIN SODIUM. [Concomitant]
     Active Substance: HEPARIN SODIUM
     Dosage: 0.625 IU, QD
     Route: 042
     Dates: start: 20151203, end: 20151203
  64. GLUTATHIONE [Concomitant]
     Active Substance: GLUTATHIONE
     Indication: PROPHYLAXIS
     Dosage: 2400 MG, BID
     Route: 042
     Dates: start: 20151203, end: 20151203
  65. LANSOPRAZOLE. [Concomitant]
     Active Substance: LANSOPRAZOLE
     Indication: ANTACID THERAPY
     Dosage: 30 MG, BID
     Route: 042
     Dates: start: 20151203, end: 20151208
  66. LANSOPRAZOLE. [Concomitant]
     Active Substance: LANSOPRAZOLE
     Indication: ANTACID THERAPY
  67. MICAFUNGIN SODIUM [Concomitant]
     Active Substance: MICAFUNGIN SODIUM
     Indication: INFECTION PROPHYLAXIS
     Dosage: 100 MG, QD
     Route: 042
     Dates: start: 20151203, end: 20151215
  68. SODIUM BICARBONATE. [Concomitant]
     Active Substance: SODIUM BICARBONATE
     Indication: THERAPEUTIC GARGLE
     Dosage: 50 ML, BID
     Route: 050
     Dates: start: 20151219, end: 20151227
  69. CEFUROXIME AXETIL. [Concomitant]
     Active Substance: CEFUROXIME AXETIL
     Dosage: 250 MG, BID
     Route: 048
     Dates: start: 20151213, end: 20151216
  70. AMBROXOL HYDROCHLORIDE [Concomitant]
     Active Substance: AMBROXOL HYDROCHLORIDE
     Indication: INFLAMMATION
  71. INSULIN [Concomitant]
     Active Substance: INSULIN NOS
     Dosage: 8 IU, QD
     Route: 042
     Dates: start: 20151230, end: 20151230
  72. AMBROXOL HYDROCHLORIDE [Concomitant]
     Active Substance: AMBROXOL HYDROCHLORIDE
     Indication: DYSPNOEA
  73. HAEMOCOAGULASE ATROX [Concomitant]
     Indication: PRODUCT USED FOR UNKNOWN INDICATION
     Dosage: 2 IU, QD
     Route: 042
     Dates: start: 20160620, end: 20160620
  74. SODIUM CHLORIDE. [Concomitant]
     Active Substance: SODIUM CHLORIDE
     Indication: NEPHROLITHIASIS
     Dosage: 3000 ML, BID
     Route: 065
     Dates: start: 20160620, end: 20160620
  75. SODIUM CHLORIDE. [Concomitant]
     Active Substance: SODIUM CHLORIDE
     Dosage: 5 ML, QD
     Route: 055
     Dates: start: 20160620, end: 20160620
  76. AMLODIPINE BESYLATE. [Concomitant]
     Active Substance: AMLODIPINE BESYLATE
     Dosage: 5 MG, QD
     Route: 048
     Dates: start: 20160707
  77. ENEMA (SODIUM PHOSPHATE, DIBASIC\SODIUM PHOSPHATE, MONOBASIC) [Concomitant]
     Active Substance: SODIUM PHOSPHATE, DIBASIC\SODIUM PHOSPHATE, MONOBASIC
     Indication: CONSTIPATION
     Dosage: 20 ML, QD
     Route: 054
     Dates: start: 20151207, end: 20151207
  78. ACETYL CYSTEINE SENJU [Concomitant]
     Active Substance: ACETYLCYSTEINE
     Indication: PROPHYLAXIS
     Dosage: 0.6 G, BID
     Route: 048
     Dates: start: 20151215, end: 20151226
  79. VALSARTAN. [Concomitant]
     Active Substance: VALSARTAN
     Indication: HYPERTENSION
     Dosage: 80 MG, QD
     Route: 048
     Dates: start: 20160822, end: 20160905
  80. BASILIXIMAB [Suspect]
     Active Substance: BASILIXIMAB
     Indication: IMMUNOSUPPRESSANT DRUG THERAPY
     Dosage: 20 MG, QD
     Route: 065
     Dates: start: 20151202, end: 20151202
  81. ISOSORBIDE MONONITRATE SUSTAINED RELEASE TABLETS [Concomitant]
     Indication: HYPERTENSION
     Dosage: 60 MG, QN
     Route: 048
     Dates: start: 20151203
  82. DOPAMINE [Concomitant]
     Active Substance: DOPAMINE HYDROCHLORIDE
     Indication: HYPERTENSION
     Dosage: 200 MG, TID
     Route: 042
     Dates: start: 20151203, end: 20151203
  83. FUROSEMIDE. [Concomitant]
     Active Substance: FUROSEMIDE
     Indication: DIURETIC THERAPY
     Dosage: 40 MG, QD
     Route: 042
     Dates: start: 20151203, end: 20151203
  84. ALBUMIN HUMAN [Concomitant]
     Active Substance: ALBUMIN HUMAN
     Indication: FLUID REPLACEMENT
     Dosage: 10 G, BID
     Route: 042
     Dates: start: 20151203, end: 20151203
  85. SODIUM CHLORIDE + DEXTROS [Concomitant]
     Indication: PRODUCT USED FOR UNKNOWN INDICATION
     Dosage: 500 ML, QD
     Route: 041
     Dates: start: 20160606, end: 20160607
  86. SORA THIOSOL [Concomitant]
     Dosage: 30 MG, QD
     Route: 041
     Dates: start: 20160623, end: 20160625
  87. GLUCOSE [Concomitant]
     Active Substance: DEXTROSE
     Indication: NEPHROLITHIASIS
     Dosage: 500 ML, QD
     Route: 042
     Dates: start: 20160620, end: 20160620
  88. DESMOPRESSIN ACETATE. [Concomitant]
     Active Substance: DESMOPRESSIN ACETATE
     Indication: NEPHROLITHIASIS
     Dosage: 15 UG, QD
     Route: 042
     Dates: start: 20160620, end: 20160620
  89. XYLOMETAZOLINE HYDROCHLORIDE [Concomitant]
     Active Substance: XYLOMETAZOLINE HYDROCHLORIDE
     Indication: INFLAMMATION
     Dosage: 10 ML, QD
     Route: 045
     Dates: start: 20151229, end: 20151229
  90. TACROLIMUS. [Suspect]
     Active Substance: TACROLIMUS
     Indication: RENAL TRANSPLANT
     Dosage: 3 MG, QD
     Route: 065
     Dates: start: 20151207, end: 20160103
  91. PREDNISONE. [Suspect]
     Active Substance: PREDNISONE
     Dosage: 10 MG, QD
     Route: 065
     Dates: start: 20160310
  92. POTASSIUM CHLORIDE. [Concomitant]
     Active Substance: POTASSIUM CHLORIDE
     Dosage: 1 G, TID
     Route: 041
     Dates: start: 20160606, end: 20160607
  93. ALOSTIN//ALPROSTADIL [Concomitant]
     Indication: ANTICOAGULANT THERAPY
     Dosage: 10 UG, QD
     Route: 042
     Dates: start: 20151204, end: 20151205
  94. LACTULOSE. [Concomitant]
     Active Substance: LACTULOSE
     Indication: FLUID REPLACEMENT
     Dosage: 10 ML, TID
     Route: 048
     Dates: start: 20151203
  95. CEFMINOX//CEFMINOX SODIUM [Concomitant]
     Dosage: 2 G, BID
     Route: 042
     Dates: start: 20160114, end: 20160116
  96. CEFUROXIME AXETIL. [Concomitant]
     Active Substance: CEFUROXIME AXETIL
     Indication: ANTIINFLAMMATORY THERAPY
     Dosage: 250 MG, BID
     Route: 048
     Dates: start: 20151218, end: 20151219
  97. SODIUM CHLORIDE. [Concomitant]
     Active Substance: SODIUM CHLORIDE
     Dosage: 5 ML, QD
     Route: 055
     Dates: start: 20160606, end: 20160606
  98. SODIUM CHLORIDE. [Concomitant]
     Active Substance: SODIUM CHLORIDE
     Dosage: 250 ML, BID
     Route: 065
     Dates: start: 20160622, end: 20160629
  99. IMIPENEM AND CILASTATIN [Concomitant]
     Active Substance: CILASTATIN SODIUM\IMIPENEM
     Indication: NEPHROLITHIASIS
     Dosage: 1 G, QD
     Route: 042
     Dates: start: 20160320, end: 20160620
  100. BASILIXIMAB [Suspect]
     Active Substance: BASILIXIMAB
     Dosage: 20 MG, QD
     Route: 065
     Dates: start: 20151206, end: 20151206
  101. PREDNISONE. [Suspect]
     Active Substance: PREDNISONE
     Indication: IMMUNOSUPPRESSANT DRUG THERAPY
     Dosage: 20 MG, QD
     Route: 065
     Dates: start: 20151206, end: 20160309
  102. BUDESONIDE. [Concomitant]
     Active Substance: BUDESONIDE
     Indication: PROPHYLAXIS
     Dosage: 1 MG, BID
     Route: 055
     Dates: start: 20151219, end: 20151225
  103. PHOSPHOCREATINE SODIUM [Concomitant]
     Active Substance: PHOSPHOCREATINE SODIUM
     Indication: FLUID REPLACEMENT
     Dosage: 2 G, BID
     Route: 042
     Dates: start: 20151203, end: 20151203
  104. POTASSIUM CHLORIDE. [Concomitant]
     Active Substance: POTASSIUM CHLORIDE
     Dosage: 2 G, TID
     Route: 042
     Dates: start: 20151204, end: 20151204
  105. MYRTOL [Concomitant]
     Active Substance: HERBALS
     Indication: ANTIINFLAMMATORY THERAPY
     Dosage: 300 MG, BID
     Route: 048
     Dates: start: 20151219, end: 20160104
  106. INSULIN [Concomitant]
     Active Substance: INSULIN NOS
     Indication: FLUID REPLACEMENT
     Dosage: 8 IU, QD
     Route: 042
     Dates: start: 20151203, end: 20151203
  107. PANTOPRAZOLE [Concomitant]
     Active Substance: PANTOPRAZOLE
     Indication: GASTRITIS PROPHYLAXIS
     Dosage: 40 MG, BID
     Route: 042
     Dates: start: 20151203, end: 20151203
  108. AMBROXOL HYDROCHLORIDE [Concomitant]
     Active Substance: AMBROXOL HYDROCHLORIDE
     Indication: PRODUCTIVE COUGH
     Dosage: 30 MG, TID
     Route: 048
     Dates: start: 20151213, end: 20151215
  109. SORA THIOSOL [Concomitant]
     Indication: PRODUCT USED FOR UNKNOWN INDICATION
     Dosage: 30 MG, QD
     Route: 041
     Dates: start: 20160620, end: 20160621
  110. GLUCOSE [Concomitant]
     Active Substance: DEXTROSE
     Dosage: 500 ML, QD
     Route: 042
     Dates: start: 20160606, end: 20160606
  111. FLURBIPROFEN AXETIL [Concomitant]
     Active Substance: FLURBIPROFEN AXETIL
     Indication: NEPHROLITHIASIS
     Dosage: 100 MG, BID
     Route: 042
     Dates: start: 20160621, end: 20160624
  112. METOCLOPRAMIDE HYDROCHLORIDE. [Concomitant]
     Active Substance: METOCLOPRAMIDE HYDROCHLORIDE
     Indication: NEPHROLITHIASIS
     Dosage: 10 MG, QD
     Route: 042
     Dates: start: 20160620, end: 20160620

REACTIONS (19)
  - Blood urea increased [Unknown]
  - Urinary tract pain [Recovered/Resolved]
  - Anaphylactic reaction [Unknown]
  - Lymphocyte count decreased [Unknown]
  - White blood cell count increased [Unknown]
  - Dyspnoea [Recovered/Resolved]
  - Alanine aminotransferase increased [Unknown]
  - Atopic cough [Recovered/Resolved]
  - Nephrolithiasis [Recovered/Resolved]
  - Neutrophil count increased [Unknown]
  - Urinary tract infection [Recovered/Resolved]
  - Urinary tract infection [Recovered/Resolved]
  - Productive cough [Recovered/Resolved]
  - Pollakiuria [Recovering/Resolving]
  - Pollakiuria [Recovered/Resolved]
  - Urinary tract infection [Recovered/Resolved]
  - Urinary tract infection [Recovered/Resolved]
  - Cough [Recovered/Resolved]
  - Pyrexia [Unknown]

NARRATIVE: CASE EVENT DATE: 20151204
